FAERS Safety Report 24090619 (Version 2)
Quarter: 2024Q3

REPORT INFORMATION
  Report Type: Spontaneous
  Country: JP (occurrence: JP)
  Receive Date: 20240715
  Receipt Date: 20240812
  Transmission Date: 20241017
  Serious: Yes (Other)
  Sender: ROCHE
  Company Number: JP-CHUGAI-2024022809AA

PATIENT
  Age: 8 Decade
  Sex: Female

DRUGS (1)
  1. ACTEMRA [Suspect]
     Active Substance: TOCILIZUMAB
     Indication: Rheumatoid arthritis
     Dosage: UNK
     Route: 042
     Dates: start: 2023

REACTIONS (3)
  - Pelvic fracture [Unknown]
  - Tartrate-resistant acid phosphatase increased [Unknown]
  - Osteitis deformans [Unknown]

NARRATIVE: CASE EVENT DATE: 20240101
